FAERS Safety Report 8679302 (Version 2)
Quarter: 2012Q4

REPORT INFORMATION
  Report Type: 
  Country: BR (occurrence: BR)
  Receive Date: 20120724
  Receipt Date: 20120828
  Transmission Date: 20130627
  Serious: Yes (Hospitalization, Other)
  Sender: FDA-Public Use
  Company Number: PHHY2012BR062853

PATIENT
  Age: 62 Year
  Sex: Male

DRUGS (3)
  1. DIOVAN [Suspect]
     Indication: HYPERTENSION
     Dosage: 1 tablet (vals 160 mg, amlo 5 mg, 12.5 hydr) daily
     Route: 048
  2. METFORMIN [Concomitant]
     Indication: DIABETES MELLITUS
     Dosage: 3 tablets daily
     Route: 048
     Dates: start: 2006
  3. SOMALGIN [Concomitant]
     Indication: ANTICOAGULANT THERAPY
     Dosage: 1 DF, daily
     Route: 048
     Dates: start: 2006

REACTIONS (5)
  - Tendon injury [Recovered/Resolved]
  - Fall [Recovered/Resolved]
  - Thrombocytosis [Recovering/Resolving]
  - Accident [Unknown]
  - Tendon rupture [None]
